FAERS Safety Report 5818336-6 (Version None)
Quarter: 2008Q3

REPORT INFORMATION
  Report Type: 
  Country: None (occurrence: None)
  Receive Date: 20080722
  Receipt Date: 20080710
  Transmission Date: 20090109
  Serious: Yes (Other)
  Sender: FDA-Public Use
  Company Number: US-PFIZER INC-2008058570

PATIENT
  Sex: Female
  Weight: 61.2 kg

DRUGS (7)
  1. CHANTIX [Suspect]
     Indication: EX-TOBACCO USER
  2. LITHOBID [Concomitant]
  3. HYDROCODONE BITARTRATE [Concomitant]
  4. TEMAZEPAM [Concomitant]
  5. LORAZEPAM [Concomitant]
  6. NEXIUM [Concomitant]
  7. VALTREX [Concomitant]

REACTIONS (5)
  - CHEST PAIN [None]
  - DEPRESSION [None]
  - FEELING ABNORMAL [None]
  - MALAISE [None]
  - MYALGIA [None]
